FAERS Safety Report 4399138-7 (Version None)
Quarter: 2004Q2

REPORT INFORMATION
  Report Type: 
  Country: None (occurrence: None)
  Receive Date: 20040621
  Receipt Date: 20040324
  Transmission Date: 20050107
  Serious: Yes (Other)
  Sender: FDA-Public Use
  Company Number: USA-2004-0014039

PATIENT
  Age: 35 Year
  Sex: Male

DRUGS (4)
  1. OXYCONTIN TABETS (OXYCODONE HYDROCHLORIDE) [Suspect]
     Indication: PAIN
     Dosage: 160 MG, BID
  2. OXYIR (OXYCODONE HYDROCHLORIDE) [Suspect]
     Indication: PAIN
     Dosage: MG, SEE TEXT
  3. ALPRAZOLAM [Concomitant]
  4. BEXTRA [Concomitant]

REACTIONS (6)
  - DRUG ABUSER [None]
  - DRUG WITHDRAWAL SYNDROME [None]
  - HYPERHIDROSIS [None]
  - INSOMNIA [None]
  - PAIN [None]
  - YAWNING [None]
